FAERS Safety Report 13892470 (Version 1)
Quarter: 2017Q3

REPORT INFORMATION
  Report Type: Spontaneous
  Country: GB (occurrence: GB)
  Receive Date: 20170822
  Receipt Date: 20170822
  Transmission Date: 20171127
  Serious: Yes (Other)
  Sender: FDA-Public Use
  Company Number: GB-TEVA-797531ACC

PATIENT
  Age: 21 Year
  Sex: Female
  Weight: 52.61 kg

DRUGS (2)
  1. GABAPENTIN. [Suspect]
     Active Substance: GABAPENTIN
     Indication: ULNAR NERVE PALSY
     Route: 048
  2. LOGYNON [Concomitant]

REACTIONS (2)
  - Gait inability [Unknown]
  - Dizziness [Recovered/Resolved]
